FAERS Safety Report 20487246 (Version 1)
Quarter: 2022Q1

REPORT INFORMATION
  Report Type: Report from Study
  Country: AR (occurrence: AR)
  Receive Date: 20220217
  Receipt Date: 20220217
  Transmission Date: 20220423
  Serious: Yes (Hospitalization)
  Sender: FDA-Public Use
  Company Number: AR-BIOGEN-2022BI01095988

PATIENT
  Age: 19 Year
  Sex: Male

DRUGS (12)
  1. SPINRAZA [Suspect]
     Active Substance: NUSINERSEN
     Indication: Spinal muscular atrophy
     Dosage: LOADING DOSE
     Route: 037
     Dates: start: 20171211, end: 20180110
  2. SPINRAZA [Suspect]
     Active Substance: NUSINERSEN
     Dosage: LOADING DOSE
     Route: 037
     Dates: start: 20180110, end: 20180205
  3. SPINRAZA [Suspect]
     Active Substance: NUSINERSEN
     Dosage: MAINTENAINCE DOSE
     Route: 037
     Dates: start: 20180205, end: 20180604
  4. SPINRAZA [Suspect]
     Active Substance: NUSINERSEN
     Dosage: MAINTENAINCE DOSE
     Route: 037
     Dates: start: 20180604, end: 20181212
  5. SPINRAZA [Suspect]
     Active Substance: NUSINERSEN
     Dosage: MAINTENAINCE DOSE
     Route: 037
     Dates: start: 20181217, end: 20201221
  6. SPINRAZA [Suspect]
     Active Substance: NUSINERSEN
     Dosage: MAINTENAINCE DOSE
     Route: 037
     Dates: start: 20201221, end: 20210510
  7. SPINRAZA [Suspect]
     Active Substance: NUSINERSEN
     Dosage: MAINTENAINCE DOSE
     Route: 037
     Dates: start: 20210510, end: 20210913
  8. SPINRAZA [Suspect]
     Active Substance: NUSINERSEN
     Dosage: MAINTENAINCE DOSE
     Route: 037
     Dates: start: 20210913, end: 20220207
  9. SPINRAZA [Suspect]
     Active Substance: NUSINERSEN
     Dosage: MAINTENAINCE DOSE
     Route: 037
     Dates: start: 20220207
  10. ACETYL CARNITINE [Concomitant]
     Indication: Product used for unknown indication
     Route: 065
  11. DIPYRONE [Concomitant]
     Active Substance: DIPYRONE
     Indication: Product used for unknown indication
     Route: 042
  12. RANITIDINE [Concomitant]
     Active Substance: RANITIDINE
     Indication: Product used for unknown indication
     Route: 065

REACTIONS (3)
  - Procedural nausea [Recovered/Resolved]
  - Post lumbar puncture syndrome [Recovered/Resolved]
  - Prescribed underdose [Unknown]

NARRATIVE: CASE EVENT DATE: 20220207
